FAERS Safety Report 13287931 (Version 1)
Quarter: 2017Q1

REPORT INFORMATION
  Report Type: Report from Study
  Country: US (occurrence: US)
  Receive Date: 20170302
  Receipt Date: 20170302
  Transmission Date: 20170428
  Serious: Yes (Hospitalization, Other)
  Sender: FDA-Public Use
  Company Number: US-BAYER-2017-037207

PATIENT
  Age: 36 Year
  Sex: Female

DRUGS (1)
  1. STIVARGA [Suspect]
     Active Substance: REGORAFENIB
     Indication: COLON CANCER
     Dosage: 80 MG, QD
     Route: 048

REACTIONS (5)
  - Gait disturbance [None]
  - Asthenia [None]
  - Oropharyngeal pain [None]
  - Hypoacusis [None]
  - Muscle spasms [None]
